FAERS Safety Report 7713949-9 (Version None)
Quarter: 2011Q3

REPORT INFORMATION
  Report Type: 
  Country: None (occurrence: None)
  Receive Date: 20110826
  Receipt Date: 20110823
  Transmission Date: 20111222
  Serious: Yes (Life-Threatening)
  Sender: FDA-Public Use
  Company Number: JP-ASTRAZENECA-2011SE50866

PATIENT
  Age: 26 Year
  Sex: Male

DRUGS (2)
  1. MIDAZOLAM HCL [Suspect]
     Indication: DENTAL CARE
     Route: 042
  2. PROPOFOL [Suspect]
     Indication: DENTAL CARE
     Route: 042

REACTIONS (1)
  - BRUGADA SYNDROME [None]
